FAERS Safety Report 17704889 (Version 3)
Quarter: 2020Q2

REPORT INFORMATION
  Report Type: Spontaneous
  Country: US (occurrence: US)
  Receive Date: 20200424
  Receipt Date: 20200519
  Transmission Date: 20200714
  Serious: Yes (Other)
  Sender: FDA-Public Use
  Company Number: US-PFIZER INC-2018465845

PATIENT
  Age: 76 Year
  Sex: Female
  Weight: 98 kg

DRUGS (4)
  1. LYRICA [Suspect]
     Active Substance: PREGABALIN
     Indication: NEUROPATHY PERIPHERAL
     Dosage: 225 MG, 3X/DAY (1 CAPSULE BY MOUTH 3 TIMES DAILY)
     Route: 048
  2. LYRICA [Suspect]
     Active Substance: PREGABALIN
     Dosage: 50 MG, 2X/DAY (TWO 25MG CAPSULES TWICE A DAY BY MOUTH)
     Route: 048
  3. INSULIN [Concomitant]
     Active Substance: INSULIN NOS
     Indication: DIABETES MELLITUS
     Dosage: 28 IU, 1X/DAY (28 UNITS A DAY IN THE EVENING)
  4. LYRICA [Suspect]
     Active Substance: PREGABALIN
     Dosage: 1 DF (ONE PILL A DAY INSTEAD OF PRESCRIBED TWO A DAY )
     Route: 048
     Dates: start: 202004

REACTIONS (4)
  - Prescribed overdose [Unknown]
  - Weight decreased [Unknown]
  - Intentional product use issue [Unknown]
  - Breast cancer female [Unknown]

NARRATIVE: CASE EVENT DATE: 2020
